FAERS Safety Report 4674621-5 (Version None)
Quarter: 2005Q2

REPORT INFORMATION
  Report Type: 
  Country: None (occurrence: None)
  Receive Date: 20050523
  Receipt Date: 20050509
  Transmission Date: 20051028
  Serious: Yes (Other)
  Sender: FDA-Public Use
  Company Number: THYM-10478

PATIENT
  Age: 22 Year
  Sex: Male
  Weight: 59 kg

DRUGS (5)
  1. THYMOGLOBULIN [Suspect]
     Indication: RENAL TRANSPLANT
     Dosage: 90 MG IV
     Route: 042
     Dates: start: 20040302, end: 20040308
  2. METHYLPREDNISOLONE [Concomitant]
  3. DIPHENHYDRAMINE HCL [Concomitant]
  4. ACETAMINOPHEN [Concomitant]
  5. METHYLPREDNISOLONE TAPER [Concomitant]

REACTIONS (2)
  - ARTERIOVENOUS FISTULA THROMBOSIS [None]
  - PHLEBITIS [None]
